FAERS Safety Report 9047040 (Version 1)
Quarter: 2013Q1

REPORT INFORMATION
  Report Type: Spontaneous
  Country: US (occurrence: US)
  Receive Date: 20130204
  Receipt Date: 20130204
  Transmission Date: 20140127
  Serious: Yes (Congenital Anomaly)
  Sender: FDA-Public Use
  Company Number: US-SANOFI-AVENTIS-2013SA005648

PATIENT
  Sex: Male

DRUGS (1)
  1. LOVENOX [Suspect]
     Dates: start: 201206

REACTIONS (1)
  - Hypospadias [Recovered/Resolved]
